FAERS Safety Report 21240624 (Version 1)
Quarter: 2022Q3

REPORT INFORMATION
  Report Type: Spontaneous
  Country: US (occurrence: US)
  Receive Date: 20220823
  Receipt Date: 20220823
  Transmission Date: 20221026
  Serious: No
  Sender: FDA-Public Use
  Company Number: US-SA-SAC20220209000900

PATIENT
  Age: 57 Year
  Sex: Female

DRUGS (1)
  1. DUPIXENT [Suspect]
     Active Substance: DUPILUMAB
     Indication: Product used for unknown indication
     Dosage: 300 MG/2ML, FREQUENCY: OTHER
     Route: 058

REACTIONS (4)
  - Skin irritation [Unknown]
  - Inflammation [Unknown]
  - Erythema [Unknown]
  - Pruritus [Unknown]
